FAERS Safety Report 6995215-2 (Version None)
Quarter: 2010Q3

REPORT INFORMATION
  Report Type: 
  Country: None (occurrence: None)
  Receive Date: 20100915
  Receipt Date: 20100903
  Transmission Date: 20110219
  Serious: Yes (Death)
  Sender: FDA-Public Use
  Company Number: UTC-001409

PATIENT
  Age: 79 Year
  Sex: Male
  Weight: 94.5 kg

DRUGS (14)
  1. REMODULIN [Suspect]
     Indication: PULMONARY ARTERIAL HYPERTENSION
     Dosage: 76.32 UG/KG (0.053 UG/KG, 1 IN 1 MIN) SUBCUTANEOUS
     Route: 058
     Dates: start: 20091201
  2. CIALIS [Concomitant]
  3. AMBIEN [Concomitant]
  4. LASIX [Concomitant]
  5. ZOLOFT [Concomitant]
  6. AMLODIPINE [Concomitant]
  7. NEURONTIN [Concomitant]
  8. LISINOPRIL [Concomitant]
  9. PRAVASTATIN [Concomitant]
  10. NOVOLIN N [Concomitant]
  11. ADVAIR DISKUS 100/50 [Concomitant]
  12. PLAVIX [Concomitant]
  13. LEVOTHYROXINE SODIUM [Concomitant]
  14. POTASSIUM CHLORIDE [Concomitant]

REACTIONS (1)
  - DEATH [None]
